FAERS Safety Report 25095126 (Version 2)
Quarter: 2025Q3

REPORT INFORMATION
  Report Type: Report from Study
  Country: ZA (occurrence: ZA)
  Receive Date: 20250319
  Receipt Date: 20250810
  Transmission Date: 20251021
  Serious: Yes (Other)
  Sender: ALEXION PHARMACEUTICALS
  Company Number: ZA-AstraZeneca-CH-00825718A

PATIENT
  Age: 74 Year
  Sex: Female

DRUGS (10)
  1. DAPAGLIFLOZIN [Suspect]
     Active Substance: DAPAGLIFLOZIN
     Indication: Diabetes mellitus
  2. FENTANYL [Concomitant]
     Active Substance: FENTANYL
     Indication: Pain
  3. LACTULOSE [Concomitant]
     Active Substance: LACTULOSE
     Route: 065
  4. DULOXETINE HYDROCHLORIDE [Concomitant]
     Active Substance: DULOXETINE HYDROCHLORIDE
     Indication: Depression
     Route: 065
  5. Serdep [Concomitant]
     Indication: Psychiatric symptom
  6. DORMONOCT [Concomitant]
     Active Substance: LOPRAZOLAM
     Indication: Insomnia
  7. AMLODIPINE BESYLATE\HYDROCHLOROTHIAZIDE\VALSARTAN [Concomitant]
     Active Substance: AMLODIPINE BESYLATE\HYDROCHLOROTHIAZIDE\VALSARTAN
     Indication: Hypertension
  8. Pantocid [Concomitant]
     Indication: Ulcer
  9. ATORVASTATIN [Concomitant]
     Active Substance: ATORVASTATIN
     Indication: Blood cholesterol
  10. BISOPROLOL FUMARATE [Concomitant]
     Active Substance: BISOPROLOL FUMARATE
     Indication: Hypertension

REACTIONS (1)
  - Cerebrovascular accident [Unknown]
